FAERS Safety Report 5280426-7 (Version None)
Quarter: 2007Q1

REPORT INFORMATION
  Report Type: 
  Country: None (occurrence: None)
  Receive Date: 20061229
  Receipt Date: 20060929
  Transmission Date: 20070707
  Serious: Yes (Other)
  Sender: FDA-Public Use
  Company Number: 2006UW19061

PATIENT
  Age: 43 Year
  Sex: Female

DRUGS (6)
  1. CRESTOR [Suspect]
     Dosage: 10 MG PO
     Route: 048
     Dates: start: 20060914
  2. LUNESTA [Concomitant]
  3. ALTACE [Concomitant]
  4. TOPAMAX [Concomitant]
  5. PREVACID [Concomitant]
  6. ALLEGRA [Concomitant]

REACTIONS (10)
  - ABDOMINAL PAIN [None]
  - ABDOMINAL PAIN UPPER [None]
  - DYSPHAGIA [None]
  - EYE SWELLING [None]
  - FLANK PAIN [None]
  - FLUSHING [None]
  - MALAISE [None]
  - NAUSEA [None]
  - PYREXIA [None]
  - THROAT IRRITATION [None]
